FAERS Safety Report 7065073-9 (Version None)
Quarter: 2010Q4

REPORT INFORMATION
  Report Type: 
  Country: None (occurrence: None)
  Receive Date: 20101027
  Receipt Date: 19900316
  Transmission Date: 20110411
  Serious: Yes (Death)
  Sender: FDA-Public Use
  Company Number: US-ROCHE-900200317001

PATIENT
  Age: 65 Year
  Sex: Female

DRUGS (14)
  1. CEFTRIAXONE SODIUM [Suspect]
     Route: 042
     Dates: start: 19900315, end: 19900316
  2. HYDROCHLOROTHIAZIDE [Concomitant]
     Route: 065
  3. VASOTEC [Concomitant]
     Route: 065
  4. PROZAC [Concomitant]
     Route: 065
  5. COLACE [Concomitant]
     Route: 065
  6. APRESOLINE [Concomitant]
     Route: 065
  7. ASPIRIN [Concomitant]
     Route: 065
  8. TENORMIN [Concomitant]
     Route: 065
  9. NOROXIN [Concomitant]
     Route: 065
  10. POLYCARBOPHIL [Concomitant]
     Route: 065
  11. CALAN [Concomitant]
     Route: 065
  12. DARVOCET-N 100 [Concomitant]
     Route: 065
  13. ACETAMINOPHEN [Concomitant]
     Route: 065
  14. INSULIN [Concomitant]
     Route: 065

REACTIONS (2)
  - CEREBROVASCULAR ACCIDENT [None]
  - PETECHIAE [None]
